FAERS Safety Report 5750405-1 (Version None)
Quarter: 2008Q2

REPORT INFORMATION
  Report Type: 
  Country: None (occurrence: None)
  Receive Date: 20080523
  Receipt Date: 20080523
  Transmission Date: 20081010
  Serious: Yes (Other)
  Sender: FDA-Public Use
  Company Number: None

PATIENT
  Age: 77 Year
  Sex: Male
  Weight: 99.7913 kg

DRUGS (8)
  1. LISINOPRIL AND HYDROCHLOROTHIAZIDE [Suspect]
     Indication: BLOOD PRESSURE
     Dosage: 20MG/12.5MG TAB 1 PER DAY
     Dates: start: 20080215
  2. LISINOPRIL AND HYDROCHLOROTHIAZIDE [Suspect]
     Indication: BLOOD PRESSURE
     Dosage: 20MG/12.5MG TAB 1 PER DAY
     Dates: start: 20080401
  3. LIPITOR [Concomitant]
  4. XALATAN (EYE DROP) [Concomitant]
  5. ASPIRIN [Concomitant]
  6. SAW PALMETTO [Concomitant]
  7. MULTIPLE VITAMIN [Concomitant]
  8. EYE VITAMIN PRESSER VISION [Concomitant]

REACTIONS (8)
  - COUGH [None]
  - DRY MOUTH [None]
  - FLUSHING [None]
  - HEADACHE [None]
  - ILL-DEFINED DISORDER [None]
  - INSOMNIA [None]
  - PHARMACEUTICAL PRODUCT COMPLAINT [None]
  - PRURITUS [None]
